FAERS Safety Report 5224852-0 (Version None)
Quarter: 2007Q1

REPORT INFORMATION
  Report Type: 
  Country: None (occurrence: None)
  Receive Date: 20070126
  Receipt Date: 20070116
  Transmission Date: 20070707
  Serious: Yes (Hospitalization)
  Sender: FDA-Public Use
  Company Number: B0455151A

PATIENT
  Age: 47 Year
  Sex: Male

DRUGS (7)
  1. LITHIUM CARBONATE [Suspect]
     Dosage: 1200 MG / TWICE PER DAY /
  2. GLIPIZIDE [Concomitant]
  3. METFORMIN HYDROCHLORIDE [Concomitant]
  4. HALOPERIDOL [Concomitant]
  5. ASPIRIN [Concomitant]
  6. QUETIAPINE FUMARATE [Concomitant]
  7. PANTOPRAZOLE SODIUM [Concomitant]

REACTIONS (11)
  - ANOREXIA [None]
  - CONFUSIONAL STATE [None]
  - COORDINATION ABNORMAL [None]
  - DYSKINESIA [None]
  - ELECTROCARDIOGRAM ST SEGMENT ELEVATION [None]
  - ELECTROCARDIOGRAM T WAVE BIPHASIC [None]
  - HAEMODIALYSIS [None]
  - INCOHERENT [None]
  - MYOCARDIAL ISCHAEMIA [None]
  - OVERDOSE [None]
  - THERAPEUTIC AGENT TOXICITY [None]
